FAERS Safety Report 14783582 (Version 3)
Quarter: 2018Q2

REPORT INFORMATION
  Report Type: Report from Study
  Country: AU (occurrence: AU)
  Receive Date: 20180420
  Receipt Date: 20180426
  Transmission Date: 20180711
  Serious: Yes (Hospitalization, Other)
  Sender: FDA-Public Use
  Company Number: AU-MYLANLABS-2018M1026203

PATIENT
  Sex: Male

DRUGS (1)
  1. CLOZARIL [Suspect]
     Active Substance: CLOZAPINE
     Indication: SCHIZOPHRENIA
     Dosage: 125MG, UNK
     Route: 048
     Dates: start: 20171020, end: 2018

REACTIONS (4)
  - Hospitalisation [Unknown]
  - Neutropenia [Recovered/Resolved]
  - Lower respiratory tract infection [Unknown]
  - Gastroenteritis [Unknown]

NARRATIVE: CASE EVENT DATE: 2018
